FAERS Safety Report 6228770-0 (Version None)
Quarter: 2009Q2

REPORT INFORMATION
  Report Type: 
  Country: None (occurrence: None)
  Receive Date: 20090615
  Receipt Date: 20090609
  Transmission Date: 20091009
  Serious: Yes (Hospitalization)
  Sender: FDA-Public Use
  Company Number: US-ALLERGAN-0906980US

PATIENT
  Age: 50 Year
  Sex: Male
  Weight: 79.365 kg

DRUGS (12)
  1. PRED FORTE [Suspect]
     Indication: POSTOPERATIVE CARE
     Dosage: UNK, QID
     Route: 047
     Dates: start: 20081222, end: 20081229
  2. PRED FORTE [Suspect]
     Dosage: UNK, TID
     Route: 047
     Dates: start: 20081229, end: 20090106
  3. PRED FORTE [Suspect]
     Dosage: UNK, BID
     Route: 047
     Dates: start: 20090106, end: 20090120
  4. FML [Suspect]
     Indication: EYE INJURY
     Dosage: UNK, UNKNOWN
     Route: 047
     Dates: start: 20040924
  5. OMNIPRED [Suspect]
     Indication: POSTOPERATIVE CARE
     Dosage: UNK, UNKNOWN
     Route: 047
  6. LOTEMAX [Suspect]
     Indication: POSTOPERATIVE CARE
     Dosage: UNK, UNKNOWN
     Route: 047
     Dates: start: 20090120, end: 20090317
  7. AMBIEN [Concomitant]
     Indication: SLEEP DISORDER THERAPY
     Dosage: 12.5
     Dates: start: 20090214, end: 20090601
  8. AMBIEN [Concomitant]
     Indication: ANTIDEPRESSANT THERAPY
  9. AMBIEN [Concomitant]
     Indication: BLOOD PRESSURE
  10. SYSTANE [Concomitant]
     Dosage: UNK, Q1HR
     Route: 047
  11. VIGAMOX [Concomitant]
     Dosage: UNK, QID
     Dates: end: 20081229
  12. TEARS [Concomitant]
     Dosage: UNK, PRN

REACTIONS (1)
  - PSYCHOTIC DISORDER [None]
